FAERS Safety Report 10868264 (Version 1)
Quarter: 2015Q1

REPORT INFORMATION
  Report Type: Spontaneous
  Country: US (occurrence: US)
  Receive Date: 20150225
  Receipt Date: 20150225
  Transmission Date: 20150721
  Serious: Yes (Other)
  Sender: FDA-Public Use
  Company Number: US-AMGEN-USASP2015015805

PATIENT
  Sex: Female

DRUGS (1)
  1. NPLATE [Suspect]
     Active Substance: ROMIPLOSTIM
     Indication: IMMUNE THROMBOCYTOPENIC PURPURA
     Dosage: UNK
     Route: 065

REACTIONS (6)
  - Back disorder [Not Recovered/Not Resolved]
  - Humerus fracture [Unknown]
  - Hypoaesthesia [Unknown]
  - Pain in extremity [Unknown]
  - Osteoporosis [Unknown]
  - Clavicle fracture [Unknown]
